FAERS Safety Report 25256695 (Version 1)
Quarter: 2025Q2

REPORT INFORMATION
  Report Type: Spontaneous
  Country: TW (occurrence: TW)
  Receive Date: 20250430
  Receipt Date: 20250430
  Transmission Date: 20250717
  Serious: Yes (Other)
  Sender: MERCK SHARP & DOHME LLC
  Company Number: TW-009507513-2278521

PATIENT
  Age: 52 Year
  Sex: Female

DRUGS (1)
  1. PEMBROLIZUMAB [Suspect]
     Active Substance: PEMBROLIZUMAB
     Dosage: 200 MG Q3W
     Dates: start: 20200319

REACTIONS (1)
  - Oesophageal squamous cell carcinoma [Unknown]

NARRATIVE: CASE EVENT DATE: 20240101
